FAERS Safety Report 22629038 (Version 1)
Quarter: 2023Q2

REPORT INFORMATION
  Report Type: Spontaneous
  Country: US (occurrence: US)
  Receive Date: 20230622
  Receipt Date: 20230622
  Transmission Date: 20230721
  Serious: No
  Sender: FDA-Public Use
  Company Number: US-SEATTLE GENETICS-2023SGN03686

PATIENT
  Sex: Female

DRUGS (1)
  1. TIVDAK [Suspect]
     Active Substance: TISOTUMAB VEDOTIN-TFTV
     Indication: Cervix carcinoma
     Dosage: UNK
     Route: 065

REACTIONS (5)
  - Eye discharge [Not Recovered/Not Resolved]
  - General physical condition abnormal [Unknown]
  - Atopy [Not Recovered/Not Resolved]
  - Weight decreased [Unknown]
  - Alopecia [Unknown]
